FAERS Safety Report 23704968 (Version 1)
Quarter: 2024Q2

REPORT INFORMATION
  Report Type: Spontaneous
  Country: CN (occurrence: CN)
  Receive Date: 20240404
  Receipt Date: 20240404
  Transmission Date: 20240716
  Serious: Yes (Hospitalization, Other)
  Sender: FDA-Public Use
  Company Number: CN-BAYER-2024A048692

PATIENT
  Age: 80 Year
  Sex: Female
  Weight: 57.5 kg

DRUGS (1)
  1. XARELTO [Suspect]
     Active Substance: RIVAROXABAN
     Indication: Thrombosis
     Dosage: 10 MG, QD
     Route: 048
     Dates: start: 20240318, end: 20240322

REACTIONS (7)
  - Anaemia [Recovering/Resolving]
  - Platelet count decreased [Unknown]
  - Ecchymosis [Recovering/Resolving]
  - Prescribed underdose [Unknown]
  - Underdose [Unknown]
  - Inappropriate schedule of product administration [Unknown]
  - Product prescribing issue [Unknown]

NARRATIVE: CASE EVENT DATE: 20240318
